FAERS Safety Report 4554676-9 (Version None)
Quarter: 2004Q4

REPORT INFORMATION
  Report Type: 
  Country: None (occurrence: None)
  Receive Date: 20041227
  Receipt Date: 20040927
  Transmission Date: 20050328
  Serious: No
  Sender: FDA-Public Use
  Company Number: US093112

PATIENT
  Age: 63 Year
  Sex: Female
  Weight: 83 kg

DRUGS (6)
  1. SENSIPAR [Suspect]
     Indication: HYPERPARATHYROIDISM SECONDARY
     Dosage: 30 MG, 1 IN 1 DAYS
     Dates: start: 20040910
  2. ESOMEPRAZOLE MAGNESIUM [Concomitant]
  3. RANITIDINE HYDROCHLORIDE [Concomitant]
  4. SEVELAMER HCL [Concomitant]
  5. ATORVASTATIN CALCIUM [Concomitant]
  6. DOXERCALCEROL [Concomitant]

REACTIONS (4)
  - NAUSEA [None]
  - RASH ERYTHEMATOUS [None]
  - RASH GENERALISED [None]
  - RASH MORBILLIFORM [None]
